FAERS Safety Report 8525565-X (Version None)
Quarter: 2012Q3

REPORT INFORMATION
  Report Type: 
  Country: None (occurrence: None)
  Receive Date: 20120720
  Receipt Date: 20120718
  Transmission Date: 20120928
  Serious: Yes (Death)
  Sender: FDA-Public Use
  Company Number: US-PURDUE-USA-2011-0061803

PATIENT
  Age: 18 Year
  Sex: Female

DRUGS (1)
  1. DILAUDID-HP [Suspect]
     Indication: PAIN
     Dosage: UNK UNK, UNK
     Route: 042

REACTIONS (3)
  - RESPIRATORY ARREST [None]
  - SUDDEN DEATH [None]
  - UNRESPONSIVE TO STIMULI [None]
